FAERS Safety Report 7296035-4 (Version None)
Quarter: 2011Q1

REPORT INFORMATION
  Report Type: 
  Country: None (occurrence: None)
  Receive Date: 20110216
  Receipt Date: 20101122
  Transmission Date: 20110831
  Serious: No
  Sender: FDA-Public Use
  Company Number: US-ABBOTT-10P-163-0687001-00

PATIENT
  Sex: Male

DRUGS (4)
  1. SIMCOR [Suspect]
     Indication: BLOOD TRIGLYCERIDES INCREASED
     Dosage: DAILY AT BEDTIME
     Route: 048
     Dates: start: 20101115
  2. SIMCOR [Suspect]
     Dosage: 500/20MG EVERY NIGHT
     Route: 048
     Dates: start: 20080101, end: 20101115
  3. XANAX [Concomitant]
     Indication: PRODUCT USED FOR UNKNOWN INDICATION
  4. BENICAR [Concomitant]
     Indication: PRODUCT USED FOR UNKNOWN INDICATION

REACTIONS (6)
  - PYREXIA [None]
  - INFLUENZA LIKE ILLNESS [None]
  - FLUSHING [None]
  - ANXIETY [None]
  - PAIN [None]
  - PARAESTHESIA [None]
